FAERS Safety Report 6885246-5 (Version None)
Quarter: 2010Q3

REPORT INFORMATION
  Report Type: 
  Country: None (occurrence: None)
  Receive Date: 20100729
  Receipt Date: 20080104
  Transmission Date: 20110219
  Serious: No
  Sender: FDA-Public Use
  Company Number: US-PFIZER INC-2008001445

PATIENT
  Sex: Male
  Weight: 83.1 kg

DRUGS (3)
  1. CELEBREX [Suspect]
     Indication: BACK PAIN
     Dates: start: 20071219, end: 20071221
  2. CELEBREX [Suspect]
     Indication: ARTHRITIS
  3. TIZANIDINE HCL [Concomitant]

REACTIONS (4)
  - BLISTER [None]
  - ERYTHEMA [None]
  - PRURITUS [None]
  - RASH [None]
